FAERS Safety Report 7167166-4 (Version None)
Quarter: 2010Q4

REPORT INFORMATION
  Report Type: 
  Country: None (occurrence: None)
  Receive Date: 20101216
  Receipt Date: 20101118
  Transmission Date: 20110411
  Serious: Yes (Other)
  Sender: FDA-Public Use
  Company Number: PHHY2010IN85192

PATIENT
  Age: 59 Year

DRUGS (1)
  1. ACLASTA [Suspect]
     Dosage: 5MG/100ML
     Dates: start: 20100330

REACTIONS (1)
  - FRACTURE [None]
